FAERS Safety Report 6103702-4 (Version None)
Quarter: 2009Q1

REPORT INFORMATION
  Report Type: 
  Country: None (occurrence: None)
  Receive Date: 20090227
  Receipt Date: 20090126
  Transmission Date: 20090719
  Serious: Yes (Hospitalization)
  Sender: FDA-Public Use
  Company Number: 2009EU000370

PATIENT
  Age: 73 Year
  Sex: Male

DRUGS (3)
  1. VESICARE [Suspect]
     Indication: PROSTATISM
     Dosage: ORAL
     Route: 048
  2. TOLTERODINE TARTRATE [Concomitant]
  3. NORMORIX (AMILORIDE HYDROCHLORIDE) [Concomitant]

REACTIONS (7)
  - DIARRHOEA [None]
  - FATIGUE [None]
  - MEDICATION ERROR [None]
  - ORTHOSTATIC HYPOTENSION [None]
  - SYNCOPE [None]
  - TREMOR [None]
  - VOMITING [None]
